FAERS Safety Report 16446244 (Version 1)
Quarter: 2019Q2

REPORT INFORMATION
  Report Type: Spontaneous
  Country: US (occurrence: US)
  Receive Date: 20190618
  Receipt Date: 20190618
  Transmission Date: 20190711
  Serious: Yes (Other)
  Sender: FDA-Public Use
  Company Number: US-MALLINCKRODT-T201904341

PATIENT
  Age: 89 Year
  Sex: Male

DRUGS (2)
  1. AMITIZA [Suspect]
     Active Substance: LUBIPROSTONE
     Dosage: 24 ?G, UNK
     Route: 065
     Dates: start: 20190606
  2. AMITIZA [Suspect]
     Active Substance: LUBIPROSTONE
     Indication: CONSTIPATION
     Dosage: 24 ?G, UNK
     Route: 065
     Dates: start: 201901, end: 201903

REACTIONS (3)
  - Positron emission tomogram abnormal [Unknown]
  - Dysuria [Recovered/Resolved]
  - Constipation [Unknown]

NARRATIVE: CASE EVENT DATE: 2019
